FAERS Safety Report 7503298-6 (Version None)
Quarter: 2011Q2

REPORT INFORMATION
  Report Type: 
  Country: None (occurrence: None)
  Receive Date: 20110525
  Receipt Date: 20110516
  Transmission Date: 20111010
  Serious: Yes (Hospitalization)
  Sender: FDA-Public Use
  Company Number: ZA-SANOFI-AVENTIS-2011SA026770

PATIENT
  Age: 63 Year
  Weight: 57 kg

DRUGS (7)
  1. CISPLATIN [Suspect]
     Route: 042
     Dates: start: 20110215, end: 20110215
  2. GRANOCYTE [Suspect]
     Dates: start: 20110216
  3. DOCETAXEL [Suspect]
     Route: 042
     Dates: start: 20110405, end: 20110405
  4. GRANOCYTE [Suspect]
     Dates: start: 20110412
  5. FLUOROURACIL [Suspect]
     Route: 042
     Dates: end: 20110408
  6. CISPLATIN [Suspect]
     Route: 042
     Dates: start: 20110405, end: 20110405
  7. DOCETAXEL [Suspect]
     Route: 042
     Dates: start: 20110215, end: 20110215

REACTIONS (1)
  - HYPERKALAEMIA [None]
